FAERS Safety Report 5556149-3 (Version None)
Quarter: 2007Q4

REPORT INFORMATION
  Report Type: 
  Country: None (occurrence: None)
  Receive Date: 20071130
  Receipt Date: 20070723
  Transmission Date: 20080405
  Serious: No
  Sender: FDA-Public Use
  Company Number: 2006PV007151

PATIENT
  Age: 66 Year
  Sex: Female
  Weight: 106.1 kg

DRUGS (2)
  1. EXENATIDE(EXENATIDE) PEN,DISPOSABLE [Suspect]
     Indication: TYPE 2 DIABETES MELLITUS
     Dosage: 5 UG, 2/D, SUBCUTANEOUS
     Route: 058
     Dates: start: 20051227, end: 20060501
  2. ACTOS [Concomitant]

REACTIONS (1)
  - EARLY SATIETY [None]
